FAERS Safety Report 4495746-3 (Version None)
Quarter: 2004Q4

REPORT INFORMATION
  Report Type: 
  Country: None (occurrence: None)
  Receive Date: 20041108
  Receipt Date: 20040921
  Transmission Date: 20050328
  Serious: Yes (Other)
  Sender: FDA-Public Use
  Company Number: PHEH2004US10156

PATIENT
  Age: 58 Year
  Sex: Female

DRUGS (7)
  1. ZOMETA [Suspect]
     Indication: METASTASES TO BONE
     Dosage: MONTHLY
     Dates: start: 20030101, end: 20040601
  2. NORVASC [Concomitant]
     Dosage: 10 MG, QD
  3. PROTONIX ^WYETH-AYERST^ [Concomitant]
     Dosage: 40 MG, QD
  4. SYNTHROID [Concomitant]
     Dosage: .2 MG, QD
  5. PLAQUENIL [Concomitant]
     Dosage: 200 MG, BID
  6. ARIMIDEX [Concomitant]
     Dosage: 1 MG, QD
  7. DARVOCET-N 100 [Concomitant]

REACTIONS (14)
  - BONE DISORDER [None]
  - DENTAL OPERATION [None]
  - DRY SOCKET [None]
  - ENDODONTIC PROCEDURE [None]
  - ERYTHEMA [None]
  - GLOSSODYNIA [None]
  - INFECTION [None]
  - OSTEOMYELITIS [None]
  - OSTEONECROSIS [None]
  - PAIN IN JAW [None]
  - POST PROCEDURAL COMPLICATION [None]
  - SEQUESTRECTOMY [None]
  - SWELLING [None]
  - TOOTH EXTRACTION [None]
